FAERS Safety Report 18107962 (Version 1)
Quarter: 2020Q3

REPORT INFORMATION
  Report Type: Spontaneous
  Country: US (occurrence: US)
  Receive Date: 20200804
  Receipt Date: 20200804
  Transmission Date: 20201103
  Serious: Yes (Death, Hospitalization)
  Sender: FDA-Public Use
  Company Number: None

PATIENT
  Age: 48 Year
  Sex: Female
  Weight: 66.8 kg

DRUGS (5)
  1. CYCLOPHOSPHAMI DE [Concomitant]
     Dates: end: 20191112
  2. METHOTREXATE. [Suspect]
     Active Substance: METHOTREXATE
     Dates: end: 20191113
  3. ONCASPAR [Suspect]
     Active Substance: PEGASPARGASE
     Dates: end: 20191029
  4. CYTARABINE. [Suspect]
     Active Substance: CYTARABINE
     Dates: end: 20191115
  5. MERCAPTOPURINE. [Suspect]
     Active Substance: MERCAPTOPURINE
     Dates: end: 20191118

REACTIONS (13)
  - Tachycardia [None]
  - Respiratory failure [None]
  - Platelet count decreased [None]
  - Aortic valve incompetence [None]
  - Hypotension [None]
  - Endocarditis [None]
  - Pyrexia [None]
  - Chills [None]
  - Respiratory distress [None]
  - Acute pulmonary oedema [None]
  - Bronchopulmonary aspergillosis [None]
  - Sepsis [None]
  - Pneumonia [None]

NARRATIVE: CASE EVENT DATE: 20191119
